FAERS Safety Report 4453676-7 (Version None)
Quarter: 2004Q3

REPORT INFORMATION
  Report Type: 
  Country: None (occurrence: None)
  Receive Date: 20040920
  Receipt Date: 20040907
  Transmission Date: 20050211
  Serious: Yes (Hospitalization)
  Sender: FDA-Public Use
  Company Number: US-BRISTOL-MYERS SQUIBB COMPANY-12700696

PATIENT

DRUGS (1)
  1. ABILIFY [Suspect]

REACTIONS (1)
  - PERICARDIAL EFFUSION [None]
